FAERS Safety Report 17081250 (Version 1)
Quarter: 2019Q4

REPORT INFORMATION
  Report Type: Spontaneous
  Country: US (occurrence: US)
  Receive Date: 20191126
  Receipt Date: 20191126
  Transmission Date: 20200122
  Serious: No
  Sender: FDA-Public Use
  Company Number: None

PATIENT
  Age: 64 Year
  Sex: Male
  Weight: 76.5 kg

DRUGS (1)
  1. BUPRENORPHINE-NALOXONE 8-2 MG SL FILM [Suspect]
     Active Substance: BUPRENORPHINE HYDROCHLORIDE\NALOXONE HYDROCHLORIDE
     Indication: DRUG DEPENDENCE
     Dosage: ?          QUANTITY:1 FILM;?

REACTIONS (3)
  - Vomiting [None]
  - Nausea [None]
  - Ill-defined disorder [None]

NARRATIVE: CASE EVENT DATE: 20191105
